FAERS Safety Report 12774959 (Version 1)
Quarter: 2016Q3

REPORT INFORMATION
  Report Type: Spontaneous
  Country: US (occurrence: US)
  Receive Date: 20160922
  Receipt Date: 20160922
  Transmission Date: 20161109
  Serious: Yes (Disabling, Other)
  Sender: FDA-Public Use
  Company Number: None

PATIENT
  Age: 45 Year
  Sex: Female
  Weight: 90 kg

DRUGS (10)
  1. LASIX [Concomitant]
     Active Substance: FUROSEMIDE
  2. CYTOMEL [Concomitant]
     Active Substance: LIOTHYRONINE SODIUM
  3. OXYCODONE [Concomitant]
     Active Substance: OXYCODONE
  4. DEPO-MEDROL [Suspect]
     Active Substance: METHYLPREDNISOLONE ACETATE
     Route: 008
  5. XANAX [Concomitant]
     Active Substance: ALPRAZOLAM
  6. GABA 5-HTP [Concomitant]
  7. VITAMIN D [Concomitant]
     Active Substance: CHOLECALCIFEROL
  8. LEVOTHROID [Concomitant]
     Active Substance: LEVOTHYROXINE SODIUM
  9. MS CONTIN [Concomitant]
     Active Substance: MORPHINE SULFATE
  10. LOSARTAN. [Concomitant]
     Active Substance: LOSARTAN

REACTIONS (5)
  - Pain [None]
  - Arachnoiditis [None]
  - Injection site pain [None]
  - Adrenal disorder [None]
  - Disability [None]

NARRATIVE: CASE EVENT DATE: 20140610
